FAERS Safety Report 5475275-0 (Version None)
Quarter: 2007Q4

REPORT INFORMATION
  Report Type: 
  Country: None (occurrence: None)
  Receive Date: 20071002
  Receipt Date: 20070920
  Transmission Date: 20080405
  Serious: Yes (Death)
  Sender: FDA-Public Use
  Company Number: JP-MERCK-0709USA04168

PATIENT
  Age: 79 Year
  Sex: Female

DRUGS (5)
  1. FOSAMAX [Suspect]
     Indication: OSTEOPOROSIS
     Route: 048
     Dates: start: 20060615, end: 20061027
  2. CALCITRIOL [Concomitant]
     Route: 048
  3. BUFFERIN [Concomitant]
     Route: 048
  4. SERMION [Concomitant]
     Route: 048
  5. ARICEPT [Concomitant]
     Route: 048

REACTIONS (2)
  - VOLVULUS [None]
  - VOMITING [None]
